FAERS Safety Report 17571817 (Version 1)
Quarter: 2020Q1

REPORT INFORMATION
  Report Type: Spontaneous
  Country: US (occurrence: US)
  Receive Date: 20200320
  Receipt Date: 20200320
  Transmission Date: 20200409
  Serious: Yes (Disabling, Other)
  Sender: FDA-Public Use
  Company Number: None

PATIENT
  Age: 47 Year
  Sex: Female
  Weight: 72 kg

DRUGS (1)
  1. RECLAST [Suspect]
     Active Substance: ZOLEDRONIC ACID
     Indication: OSTEOPOROSIS
     Dosage: ?          OTHER FREQUENCY:1X/ YEAR;?
     Route: 042
     Dates: start: 20191226, end: 20191226

REACTIONS (11)
  - Dyspnoea [None]
  - Nausea [None]
  - Pyrexia [None]
  - Arthralgia [None]
  - Vomiting [None]
  - Myalgia [None]
  - Neuropathy peripheral [None]
  - Diarrhoea [None]
  - Rib fracture [None]
  - Oedema peripheral [None]
  - Weight increased [None]

NARRATIVE: CASE EVENT DATE: 20200101
